FAERS Safety Report 10232926 (Version 1)
Quarter: 2014Q2

REPORT INFORMATION
  Report Type: Spontaneous
  Country: US (occurrence: None)
  Receive Date: 20140611
  Receipt Date: 20140611
  Transmission Date: 20141212
  Serious: Yes (Disabling)
  Sender: FDA-Public Use
  Company Number: None

PATIENT
  Age: 3 Year
  Sex: Male

DRUGS (1)
  1. AMIKACIN [Suspect]
     Indication: ATYPICAL MYCOBACTERIAL INFECTION
     Route: 042
     Dates: start: 20131029

REACTIONS (1)
  - Deafness [None]
